FAERS Safety Report 8348838-2 (Version None)
Quarter: 2012Q2

REPORT INFORMATION
  Report Type: 
  Country: None (occurrence: None)
  Receive Date: 20120510
  Receipt Date: 20120508
  Transmission Date: 20120825
  Serious: No
  Sender: FDA-Public Use
  Company Number: US-PFIZER INC-2012113155

PATIENT
  Sex: Female
  Weight: 79.365 kg

DRUGS (4)
  1. LYRICA [Suspect]
     Indication: FIBROMYALGIA
     Dosage: UNK
     Route: 048
  2. LISINOPRIL AND HYDROCHLOROTHIAZIDE [Concomitant]
     Indication: HYPERTENSION
     Dosage: 20/25MG,DAILY
  3. LYRICA [Suspect]
     Dosage: 150MG, DAILY
     Route: 048
     Dates: end: 20120401
  4. METFORMIN [Concomitant]
     Indication: BLOOD GLUCOSE INCREASED
     Dosage: 500 MG, 2X/DAY

REACTIONS (1)
  - PAIN [None]
